FAERS Safety Report 4415265-X (Version None)
Quarter: 2004Q3

REPORT INFORMATION
  Report Type: 
  Country: None (occurrence: None)
  Receive Date: 20040730
  Receipt Date: 20040720
  Transmission Date: 20050211
  Serious: Yes (Other)
  Sender: FDA-Public Use
  Company Number: 2004224592US

PATIENT
  Age: 14 Year
  Sex: Female

DRUGS (6)
  1. VINCRISTINE [Suspect]
     Indication: SARCOMA
     Dosage: 1.5 MG/M2, CYCLIC, UNKNOWN
  2. ADRIAMYCIN PFS [Suspect]
     Indication: SARCOMA
     Dosage: 75 MG/M2, OVER 48 HR, CYCLIC, UNKNOWN
  3. CYCLOPHOSPHAMIDE [Suspect]
     Dosage: 1200 MG/M2, CYCLIC, UNKNOWN
  4. IFX (IFOFAMIDE) POWDER, STERILE [Suspect]
     Indication: SARCOMA
     Dosage: 1800 MG/M2, DAILY X 5, CYCLIC
  5. ETOPSIDE   (ETOPSIDE) [Suspect]
     Indication: SARCOMA
     Dosage: 100G/MM2, CYCLIC, UNKNOWN
  6. RADIATION [Suspect]
     Indication: SARCOMA
     Dosage: 1,960 CGY + 800 CGY, CYCLIC

REACTIONS (4)
  - DRUG TOXICITY [None]
  - OVARIAN FAILURE [None]
  - RENAL IMPAIRMENT [None]
  - RENAL TRANSPLANT [None]
